FAERS Safety Report 8079110-6 (Version None)
Quarter: 2012Q1

REPORT INFORMATION
  Report Type: 
  Country: None (occurrence: None)
  Receive Date: 20120124
  Receipt Date: 20120109
  Transmission Date: 20120608
  Serious: Yes (Death)
  Sender: FDA-Public Use
  Company Number: DSA_81031_2004

PATIENT
  Age: 34 Year
  Sex: Female

DRUGS (5)
  1. ZOLPIDEM [Suspect]
     Indication: PRODUCT USED FOR UNKNOWN INDICATION
  2. XYREM [Suspect]
     Indication: INSOMNIA
     Dosage: (4.5 GM, 1 D), ORAL
     Route: 048
     Dates: start: 20040623, end: 20040707
  3. TEMAZEPAM [Suspect]
     Indication: PRODUCT USED FOR UNKNOWN INDICATION
  4. OTHER AND UNSPECIFIED DRUGS, MEDICAMENTS, AND BIOLOGICAL SUBSTANCES [Suspect]
     Indication: PRODUCT USED FOR UNKNOWN INDICATION
  5. UNDETERMINED BENZODIAZEPINES [Concomitant]

REACTIONS (7)
  - NEPHROSCLEROSIS [None]
  - DROWNING [None]
  - PULMONARY CONGESTION [None]
  - PULMONARY OEDEMA [None]
  - COMPLETED SUICIDE [None]
  - BRAIN OEDEMA [None]
  - MULTIPLE DRUG OVERDOSE INTENTIONAL [None]
